FAERS Safety Report 24559253 (Version 3)
Quarter: 2025Q3

REPORT INFORMATION
  Report Type: Spontaneous
  Country: EU (occurrence: EU)
  Receive Date: 20241029
  Receipt Date: 20250923
  Transmission Date: 20251021
  Serious: Yes (Death, Other)
  Sender: GLAXOSMITHKLINE
  Company Number: EU-GSKCCFEMEA-Case-02099114_AE-89493

PATIENT
  Sex: Female

DRUGS (1)
  1. ALBUTEROL [Suspect]
     Active Substance: ALBUTEROL
     Indication: Asthma

REACTIONS (1)
  - Death [Fatal]
